FAERS Safety Report 17730802 (Version 1)
Quarter: 2020Q2

REPORT INFORMATION
  Report Type: Spontaneous
  Country: DE (occurrence: DE)
  Receive Date: 20200430
  Receipt Date: 20200430
  Transmission Date: 20200714
  Serious: Yes (Other)
  Sender: FDA-Public Use
  Company Number: DE-MYLANLABS-2020M1042508

PATIENT
  Age: 68 Year
  Sex: Male

DRUGS (5)
  1. VALSARTAN 1A PHARMA PLUS [Suspect]
     Active Substance: HYDROCHLOROTHIAZIDE\VALSARTAN
     Indication: HYPERTENSION
     Dosage: 1 DF CONTAINS 160 MG VALSARTAN AND 12.5 MG HYDROCHLOROTHIAZIDE
     Dates: start: 20170214
  2. VALSARTAN HENNIG PLUS HCT [Suspect]
     Active Substance: HYDROCHLOROTHIAZIDE\VALSARTAN
     Indication: HYPERTENSION
     Dosage: 1 DF CONTAINS 160 MG VALSARTAN AND 12.5 MG HYDROCHLOROTHIAZIDE
     Dates: start: 20160913
  3. VALSARTAN. [Suspect]
     Active Substance: VALSARTAN
     Indication: HYPERTENSION
     Dosage: UNK
     Route: 048
     Dates: start: 20170713
  4. VALSARTAN DURA [Suspect]
     Active Substance: VALSARTAN
     Indication: HYPERTENSION
     Dosage: UNK
     Dates: start: 20180723
  5. VALSACOR [Suspect]
     Active Substance: VALSARTAN
     Indication: HYPERTENSION
     Dosage: UNK
     Dates: start: 20181214

REACTIONS (14)
  - Rectal cancer [Unknown]
  - Swollen tongue [Unknown]
  - Fatigue [Unknown]
  - Muscle spasms [Unknown]
  - Product impurity [Unknown]
  - Headache [Unknown]
  - Urticaria [Unknown]
  - Nausea [Unknown]
  - Cough [Unknown]
  - Swelling face [Unknown]
  - Asthenia [Unknown]
  - Abdominal pain [Unknown]
  - Diarrhoea [Unknown]
  - Vertigo [Unknown]
